FAERS Safety Report 8892236 (Version 1)
Quarter: 2012Q4

REPORT INFORMATION
  Report Type: 
  Country: US (occurrence: US)
  Receive Date: 20121107
  Receipt Date: 20121107
  Transmission Date: 20130627
  Serious: No
  Sender: FDA-Public Use
  Company Number: US-AMGEN-USASP2011057677

PATIENT
  Sex: Female

DRUGS (14)
  1. ENBREL [Suspect]
     Indication: PRODUCT USED FOR UNKNOWN INDICATION
     Dosage: 50 mg, qwk
  2. DIFLUCAN [Concomitant]
     Dosage: 50 mg, UNK
  3. LORATADINE [Concomitant]
     Dosage: 10 mg, UNK
  4. METHOTREXATE [Concomitant]
     Dosage: 25 mg, UNK
  5. LEUCOVORIN /00566701/ [Concomitant]
     Dosage: 200 mg, UNK
  6. FOLIC ACID [Concomitant]
     Dosage: 1 mg, UNK
  7. CELEBREX [Concomitant]
     Dosage: 50 mg, UNK
  8. VESICARE [Concomitant]
     Dosage: 10 mg, UNK
  9. CALCIUM + VIT D [Concomitant]
     Dosage: UNK
  10. NEXIUM                             /01479302/ [Concomitant]
     Dosage: 20 mg, UNK
  11. LO/OVRAL-28 [Concomitant]
     Dosage: 1 UNK, UNK
  12. ACIDOPHILUS [Concomitant]
     Dosage: UNK
  13. VITAMIN B COMPLEX [Concomitant]
     Dosage: UNK
  14. CHOLEST-OFF [Concomitant]
     Dosage: UNK

REACTIONS (2)
  - Injection site erythema [Not Recovered/Not Resolved]
  - Injection site pain [Not Recovered/Not Resolved]
